FAERS Safety Report 14312530 (Version 2)
Quarter: 2017Q4

REPORT INFORMATION
  Report Type: Report from Study
  Country: US (occurrence: DE)
  Receive Date: 20171221
  Receipt Date: 20171228
  Transmission Date: 20180321
  Serious: Yes (Hospitalization, Other)
  Sender: FDA-Public Use
  Company Number: US-BRISTOL-MYERS SQUIBB COMPANY-BMS-2017-116355

PATIENT
  Age: 48 Year
  Sex: Female
  Weight: 50.1 kg

DRUGS (2)
  1. NIVOLUMAB [Suspect]
     Active Substance: NIVOLUMAB
     Indication: ADENOID CYSTIC CARCINOMA
     Dosage: 3 MG/KG, Q2WK
     Route: 042
     Dates: start: 20171004, end: 20171213
  2. IPILIMUMAB [Suspect]
     Active Substance: IPILIMUMAB
     Indication: ADENOID CYSTIC CARCINOMA
     Dosage: 1 MG/KG, Q6WK
     Route: 042
     Dates: start: 20171004, end: 20171115

REACTIONS (3)
  - Tumour pain [Unknown]
  - Dyspnoea [Recovering/Resolving]
  - Hypoxia [Unknown]

NARRATIVE: CASE EVENT DATE: 20171215
